FAERS Safety Report 6214183-4 (Version None)
Quarter: 2009Q2

REPORT INFORMATION
  Report Type: 
  Country: None (occurrence: None)
  Receive Date: 20090604
  Receipt Date: 20090527
  Transmission Date: 20091009
  Serious: Yes (Hospitalization)
  Sender: FDA-Public Use
  Company Number: US-BAYER-200921926NA

PATIENT
  Age: 41 Year
  Sex: Female

DRUGS (5)
  1. AVELOX [Suspect]
     Indication: SINUSITIS
     Dosage: TOTAL DAILY DOSE: 400 MG  UNIT DOSE: 400 MG
     Route: 048
     Dates: start: 20090201
  2. LEVOTHYROXINE [Concomitant]
     Indication: HYPOTHYROIDISM
     Dosage: TOTAL DAILY DOSE: 100 ?G  UNIT DOSE: 100 ?G
     Route: 048
  3. CLARITIN-D [Concomitant]
     Indication: SINUS DISORDER
     Dosage: PRN Q12
     Route: 048
  4. LORTAB [Concomitant]
     Indication: PAIN
     Dosage: PRN Q6HRS
     Route: 048
  5. AMOXICILLIN [Concomitant]
     Indication: ANTIBIOTIC PROPHYLAXIS
     Dates: start: 20090201

REACTIONS (4)
  - ABDOMINAL PAIN UPPER [None]
  - DRUG HYPERSENSITIVITY [None]
  - HEPATIC ENZYME INCREASED [None]
  - HEPATOMEGALY [None]
